FAERS Safety Report 23919919 (Version 1)
Quarter: 2024Q2

REPORT INFORMATION
  Report Type: Report from Study
  Country: CL (occurrence: CL)
  Receive Date: 20240530
  Receipt Date: 20240530
  Transmission Date: 20240716
  Serious: Yes (Hospitalization, Other)
  Sender: FDA-Public Use
  Company Number: CL-UCBSA-2024026406

PATIENT
  Age: 86 Year
  Sex: Male
  Weight: 51 kg

DRUGS (2)
  1. ROTIGOTINE [Suspect]
     Active Substance: ROTIGOTINE
     Indication: Parkinson^s disease
     Dosage: 3 MILLIGRAM, ONCE DAILY (QD)
     Route: 062
     Dates: start: 20240305, end: 20240513
  2. BENSERAZIDE\LEVODOPA [Concomitant]
     Active Substance: BENSERAZIDE\LEVODOPA
     Indication: Parkinson^s disease
     Dosage: UNK

REACTIONS (7)
  - Gastric operation [Unknown]
  - Sputum purulent [Unknown]
  - Oxygen consumption [Unknown]
  - Gastrointestinal disorder [Recovered/Resolved]
  - Wrong technique in product usage process [Unknown]
  - Product administration interrupted [Unknown]
  - Product availability issue [Unknown]

NARRATIVE: CASE EVENT DATE: 20240305
